FAERS Safety Report 9243444 (Version 1)
Quarter: 2013Q2

REPORT INFORMATION
  Report Type: Spontaneous
  Country: US (occurrence: US)
  Receive Date: 20130421
  Receipt Date: 20130421
  Transmission Date: 20140414
  Serious: Yes (Death, Hospitalization)
  Sender: FDA-Public Use
  Company Number: US-B.I. PHARMACEUTICALS,INC./RIDGEFIELD-2013-BI-10274GD

PATIENT
  Age: 75 Year
  Sex: Male

DRUGS (6)
  1. PREDNISONE [Suspect]
  2. IPRATROPIUMBROMID [Suspect]
  3. METOPROLOL [Suspect]
  4. ALBUTEROL [Suspect]
  5. LEVOTHYROXINE [Suspect]
  6. LOPERAMIDE [Suspect]

REACTIONS (6)
  - Septic shock [Fatal]
  - Clostridium difficile colitis [Fatal]
  - Diarrhoea [Fatal]
  - Leukocytosis [Unknown]
  - Pyrexia [Unknown]
  - Constipation [Unknown]
